FAERS Safety Report 7590120-5 (Version None)
Quarter: 2011Q3

REPORT INFORMATION
  Report Type: 
  Country: None (occurrence: None)
  Receive Date: 20110705
  Receipt Date: 20110627
  Transmission Date: 20111222
  Serious: Yes (Other)
  Sender: FDA-Public Use
  Company Number: B0729839A

PATIENT
  Age: 40 Year
  Sex: Male

DRUGS (3)
  1. BECONASE [Suspect]
     Indication: RHINITIS
     Route: 065
  2. SERETIDE [Suspect]
     Indication: ASTHMA
     Dosage: 2000U UNKNOWN
     Route: 055
  3. ALBUTEROL SULFATE AUTOHALER [Suspect]
     Indication: ASTHMA
     Route: 055

REACTIONS (3)
  - DRUG INEFFECTIVE [None]
  - ASTHMA [None]
  - OVERDOSE [None]
